FAERS Safety Report 7122168-9 (Version None)
Quarter: 2010Q4

REPORT INFORMATION
  Report Type: 
  Country: None (occurrence: None)
  Receive Date: 20101124
  Receipt Date: 20101116
  Transmission Date: 20110411
  Serious: Yes (Hospitalization)
  Sender: FDA-Public Use
  Company Number: GB-PFIZER INC-2010151492

PATIENT
  Age: 78 Year
  Sex: Male

DRUGS (1)
  1. CELECOXIB [Suspect]

REACTIONS (1)
  - CENTRAL NERVOUS SYSTEM FUNCTION TEST ABNORMAL [None]
